FAERS Safety Report 9248413 (Version 1)
Quarter: 2013Q1

REPORT INFORMATION
  Report Type: Spontaneous
  Country: US (occurrence: None)
  Receive Date: 20130305
  Receipt Date: 20130305
  Transmission Date: 20140127
  Serious: Yes (Hospitalization, Other)
  Sender: FDA-Public Use
  Company Number: 163-21880012060878 (0)

PATIENT
  Age: 78 Year
  Sex: Male

DRUGS (3)
  1. REVLIMID [Suspect]
     Indication: PLASMA CELL MYELOMA
     Dosage: 25 MG, 21, PO
     Route: 048
     Dates: start: 20111122
  2. SPIRONOLACTONE (SPIRONOLACTONE) [Concomitant]
     Dates: start: 20111122
  3. NITROGLYCERIN [Concomitant]

REACTIONS (2)
  - Hip fracture [None]
  - Fall [None]
